FAERS Safety Report 7160330-X (Version None)
Quarter: 2010Q4

REPORT INFORMATION
  Report Type: 
  Country: None (occurrence: None)
  Receive Date: 20101214
  Receipt Date: 20091203
  Transmission Date: 20110411
  Serious: No
  Sender: FDA-Public Use
  Company Number: US-AMGEN-KDL378258

PATIENT

DRUGS (7)
  1. ENBREL [Suspect]
     Indication: RHEUMATOID ARTHRITIS
     Dosage: 50 MG, QWK
     Dates: start: 20070101
  2. METHOTREXATE [Concomitant]
     Dosage: UNK UNK, UNK
  3. FOLIC ACID [Concomitant]
     Dosage: UNK UNK, UNK
  4. SIMVASTATIN [Concomitant]
     Dosage: UNK UNK, UNK
  5. ACTONEL [Concomitant]
     Dosage: UNK UNK, UNK
  6. MELOXICAM [Concomitant]
     Dosage: UNK UNK, UNK
  7. AMLODIPINE BESYLATE [Concomitant]
     Dosage: UNK UNK, UNK

REACTIONS (2)
  - DIARRHOEA [None]
  - EXPIRED DRUG ADMINISTERED [None]
